FAERS Safety Report 7983733-X (Version None)
Quarter: 2011Q4

REPORT INFORMATION
  Report Type: 
  Country: None (occurrence: None)
  Receive Date: 20111215
  Receipt Date: 20111209
  Transmission Date: 20120403
  Serious: Yes (Hospitalization)
  Sender: FDA-Public Use
  Company Number: US-ROCHE-1020847

PATIENT
  Sex: Female

DRUGS (1)
  1. NAPROXEN [Suspect]
     Indication: RHEUMATOID ARTHRITIS

REACTIONS (7)
  - GASTRIC DISORDER [None]
  - DIARRHOEA [None]
  - FAECES DISCOLOURED [None]
  - DIZZINESS [None]
  - GASTRIC HAEMORRHAGE [None]
  - ULCER HAEMORRHAGE [None]
  - DEHYDRATION [None]
